FAERS Safety Report 6167355-1 (Version None)
Quarter: 2009Q2

REPORT INFORMATION
  Report Type: 
  Country: None (occurrence: None)
  Receive Date: 20090424
  Receipt Date: 20090317
  Transmission Date: 20091009
  Serious: Yes (Death)
  Sender: FDA-Public Use
  Company Number: JP-JNJFOC-20090405632

PATIENT
  Age: 75 Year
  Sex: Male

DRUGS (4)
  1. DORIPENEM [Suspect]
     Indication: INTERSTITIAL LUNG DISEASE
     Route: 041
  2. DALACIN S [Suspect]
     Indication: INTERSTITIAL LUNG DISEASE
     Route: 065
  3. CEFEPIME [Suspect]
     Indication: DRUG USE FOR UNKNOWN INDICATION
     Route: 065
  4. CHEMOTHERAPY [Suspect]
     Indication: LUNG NEOPLASM MALIGNANT
     Route: 065

REACTIONS (1)
  - INTERSTITIAL LUNG DISEASE [None]
